FAERS Safety Report 9642689 (Version 2)
Quarter: 2016Q2

REPORT INFORMATION
  Report Type: Spontaneous
  Country: TN (occurrence: TN)
  Receive Date: 20131024
  Receipt Date: 20160620
  Transmission Date: 20160815
  Serious: Yes (Death, Other)
  Sender: FDA-Public Use
  Company Number: TN-MYLANLABS-2013S1023229

PATIENT

DRUGS (1)
  1. METHOTREXATE [Suspect]
     Active Substance: METHOTREXATE
     Indication: ECTOPIC PREGNANCY TERMINATION
     Dosage: 44 MG/M2
     Route: 030
     Dates: start: 20160303

REACTIONS (10)
  - Septic shock [Fatal]
  - Skin lesion [Not Recovered/Not Resolved]
  - Mucosal inflammation [Not Recovered/Not Resolved]
  - Dysphagia [Not Recovered/Not Resolved]
  - Odynophagia [Not Recovered/Not Resolved]
  - Cholestasis [Not Recovered/Not Resolved]
  - Toxicity to various agents [Fatal]
  - Bone marrow failure [Not Recovered/Not Resolved]
  - Renal failure [Not Recovered/Not Resolved]
  - Hepatocellular injury [Not Recovered/Not Resolved]
